FAERS Safety Report 6582040-X (Version None)
Quarter: 2010Q1

REPORT INFORMATION
  Report Type: 
  Country: None (occurrence: None)
  Receive Date: 20100215
  Receipt Date: 20100205
  Transmission Date: 20100710
  Serious: Yes (Other)
  Sender: FDA-Public Use
  Company Number: US-AMGEN-US375401

PATIENT
  Sex: Female
  Weight: 54.5 kg

DRUGS (4)
  1. NPLATE [Suspect]
     Indication: IDIOPATHIC THROMBOCYTOPENIC PURPURA
     Route: 058
     Dates: start: 20080923, end: 20091016
  2. ESTRACE [Concomitant]
     Dates: start: 20020701
  3. PROZAC [Concomitant]
     Dates: start: 20020701
  4. DIOVAN [Concomitant]
     Dates: start: 20060301

REACTIONS (3)
  - CONTUSION [None]
  - MYELOFIBROSIS [None]
  - PLATELET COUNT DECREASED [None]
